FAERS Safety Report 13065212 (Version 1)
Quarter: 2016Q4

REPORT INFORMATION
  Report Type: Spontaneous
  Country: CN (occurrence: CN)
  Receive Date: 20161227
  Receipt Date: 20161227
  Transmission Date: 20170207
  Serious: Yes (Other)
  Sender: FDA-Public Use
  Company Number: CN-BAYER-2016-239263

PATIENT
  Age: 73 Year
  Sex: Male

DRUGS (1)
  1. BAYASPIRIN 100 MG [Suspect]
     Active Substance: ASPIRIN
     Dosage: UNK
     Dates: end: 2016

REACTIONS (2)
  - Chest discomfort [None]
  - Chronic lymphocytic leukaemia [None]

NARRATIVE: CASE EVENT DATE: 2016
